FAERS Safety Report 20337020 (Version 1)
Quarter: 2022Q1

REPORT INFORMATION
  Report Type: Spontaneous
  Country: US (occurrence: US)
  Receive Date: 20220114
  Receipt Date: 20220114
  Transmission Date: 20220423
  Serious: No
  Sender: FDA-Public Use
  Company Number: US-PFIZER INC-2020074820

PATIENT
  Age: 54 Year
  Sex: Female
  Weight: 63.5 kg

DRUGS (2)
  1. DEPO-ESTRADIOL [Suspect]
     Active Substance: ESTRADIOL CYPIONATE
     Indication: Hysterectomy
     Dosage: 1 MG/ML, EVERY 3 WEEKS
     Dates: start: 2017
  2. DEPO-ESTRADIOL [Suspect]
     Active Substance: ESTRADIOL CYPIONATE
     Indication: Menopausal symptoms
     Dosage: 1 ML (5MG), EVERY 3-4 WEEKS
     Route: 030

REACTIONS (2)
  - Therapeutic response unexpected [Unknown]
  - Therapeutic product effect incomplete [Unknown]
